FAERS Safety Report 10004713 (Version 3)
Quarter: 2014Q2

REPORT INFORMATION
  Report Type: Spontaneous
  Country: US (occurrence: US)
  Receive Date: 20140312
  Receipt Date: 20140508
  Transmission Date: 20141212
  Serious: Yes (Other)
  Sender: FDA-Public Use
  Company Number: US-GLAXOSMITHKLINE-A1063556A

PATIENT
  Age: 45 Year
  Sex: Female

DRUGS (4)
  1. FLOVENT [Suspect]
     Indication: ASTHMA
     Dosage: 3PUFF TWICE PER DAY
     Route: 055
  2. CIPROFLOXACIN [Concomitant]
  3. OXYGEN [Concomitant]
  4. NEBULIZER [Concomitant]

REACTIONS (7)
  - Pneumonia [Unknown]
  - Cough [Unknown]
  - Speech disorder [Unknown]
  - Off label use [Unknown]
  - Malaise [Unknown]
  - Bronchitis chronic [Unknown]
  - Dyspnoea [Unknown]
